FAERS Safety Report 7545571-1 (Version None)
Quarter: 2011Q2

REPORT INFORMATION
  Report Type: 
  Country: None (occurrence: None)
  Receive Date: 20110614
  Receipt Date: 20110531
  Transmission Date: 20111010
  Serious: Yes (Other)
  Sender: FDA-Public Use
  Company Number: DE-JNJFOC-20100107428

PATIENT
  Age: 59 Year
  Sex: Female
  Weight: 57 kg

DRUGS (8)
  1. REMICADE [Suspect]
     Indication: SPONDYLITIS
     Route: 042
     Dates: start: 20070327, end: 20070927
  2. ENBREL [Suspect]
     Indication: SPONDYLITIS
     Route: 058
     Dates: start: 20090122, end: 20091214
  3. HUMIRA [Suspect]
     Indication: SPONDYLITIS
     Route: 058
     Dates: start: 20070927, end: 20080611
  4. CELEBREX [Concomitant]
  5. ACTONEL [Concomitant]
  6. CALCIMAGON [Concomitant]
  7. MAGNESIUM SULFATE [Concomitant]
  8. AZULFIDINE [Suspect]
     Indication: SPONDYLITIS
     Dates: start: 20080611, end: 20090122

REACTIONS (2)
  - CARDIOMEGALY [None]
  - PERICARDIAL EFFUSION [None]
